FAERS Safety Report 6748224-2 (Version None)
Quarter: 2010Q2

REPORT INFORMATION
  Report Type: 
  Country: None (occurrence: None)
  Receive Date: 20100601
  Receipt Date: 20100524
  Transmission Date: 20101027
  Serious: Yes (Hospitalization)
  Sender: FDA-Public Use
  Company Number: US-BIOGENIDEC-2009BI028890

PATIENT
  Age: 53 Year
  Sex: Female
  Weight: 50 kg

DRUGS (3)
  1. TYSABRI [Suspect]
     Indication: MULTIPLE SCLEROSIS
     Route: 042
     Dates: start: 20090529
  2. ULTRAM [Concomitant]
     Indication: PAIN
  3. ALTACE [Concomitant]
     Indication: HYPERTENSION

REACTIONS (3)
  - BLADDER SPASM [None]
  - DYSURIA [None]
  - MICTURITION URGENCY [None]
